FAERS Safety Report 8084274-4 (Version None)
Quarter: 2012Q1

REPORT INFORMATION
  Report Type: 
  Country: None (occurrence: None)
  Receive Date: 20120128
  Receipt Date: 20110307
  Transmission Date: 20120608
  Serious: No
  Sender: FDA-Public Use
  Company Number: US-ABBOTT-11P-163-0709785-00

PATIENT
  Age: 55 Year
  Sex: Female

DRUGS (10)
  1. METHOTREXATE [Concomitant]
     Indication: RHEUMATOID ARTHRITIS
     Dosage: 4 ORANGE PILLS WEEKLY
  2. HUMIRA [Suspect]
     Indication: RHEUMATOID ARTHRITIS
     Dates: start: 20101101
  3. PREDNISONE TAB [Concomitant]
     Indication: RHEUMATOID ARTHRITIS
     Dosage: 5MG X 1/2 TABLET EVERY OTHER DAY
  4. HYDROCHLOROTHIAZIDE [Concomitant]
     Indication: NEPHROLITHIASIS
  5. FOLIC ACID [Concomitant]
     Indication: VITAMIN SUPPLEMENTATION
  6. TRAZODONE HCL [Concomitant]
     Indication: HOT FLUSH
  7. SINGULAIR [Concomitant]
     Indication: ASTHMA
     Dosage: AT BEDTIME
  8. CALCIUM CITRATE W/VITAMIN D NOS [Concomitant]
     Indication: VITAMIN SUPPLEMENTATION
     Dosage: 630/400 IU DAILY
  9. GLUCOSAMINE [Concomitant]
     Indication: ARTHRITIS
     Dosage: TRIPLE STRENGTH DAILY
  10. ARTHROTEC [Concomitant]
     Indication: ARTHRITIS

REACTIONS (3)
  - FATIGUE [None]
  - ARTHRALGIA [None]
  - HEADACHE [None]
